FAERS Safety Report 16092749 (Version 1)
Quarter: 2019Q1

REPORT INFORMATION
  Report Type: Spontaneous
  Country: NL (occurrence: NL)
  Receive Date: 20190320
  Receipt Date: 20190320
  Transmission Date: 20190418
  Serious: Yes (Death, Hospitalization, Other)
  Sender: FDA-Public Use
  Company Number: NL-AUROBINDO-AUR-APL-2019-013459

PATIENT

DRUGS (3)
  1. TEMAZEPAM. [Suspect]
     Active Substance: TEMAZEPAM
     Dosage: 20 MG, QD
     Route: 065
  2. TEMAZEPAM. [Suspect]
     Active Substance: TEMAZEPAM
     Indication: PRODUCT USED FOR UNKNOWN INDICATION
     Dosage: 20 MG, QD
     Route: 065
  3. TRAMADOL. [Suspect]
     Active Substance: TRAMADOL
     Indication: PRODUCT USED FOR UNKNOWN INDICATION
     Route: 065

REACTIONS (18)
  - Delirium [Not Recovered/Not Resolved]
  - Fracture [Unknown]
  - Hypotension [Unknown]
  - Gait disturbance [Unknown]
  - Pain in extremity [Unknown]
  - Pneumonia [Unknown]
  - Withdrawal syndrome [Unknown]
  - Cardiac failure [Unknown]
  - Renal impairment [Unknown]
  - Diabetes mellitus [Unknown]
  - Haematoma [Unknown]
  - Death [Fatal]
  - Contusion [Unknown]
  - Nightmare [Unknown]
  - Hallucination [Unknown]
  - Haemoptysis [Unknown]
  - Depressed level of consciousness [Unknown]
  - Fall [Unknown]

NARRATIVE: CASE EVENT DATE: 20180321
